FAERS Safety Report 18288548 (Version 1)
Quarter: 2020Q3

REPORT INFORMATION
  Report Type: Spontaneous
  Country: IL (occurrence: IL)
  Receive Date: 20200921
  Receipt Date: 20200921
  Transmission Date: 20201103
  Serious: Yes (Other)
  Sender: FDA-Public Use
  Company Number: IL-TEVA-2020-IL-1827943

PATIENT
  Age: 46 Year
  Sex: Female

DRUGS (1)
  1. CARBOPLATIN TEVA [Suspect]
     Active Substance: CARBOPLATIN
     Route: 065
     Dates: start: 20200706

REACTIONS (3)
  - Hypersensitivity [Unknown]
  - Pruritus [Unknown]
  - Abdominal pain [Unknown]
